FAERS Safety Report 6645272-8 (Version None)
Quarter: 2010Q1

REPORT INFORMATION
  Report Type: 
  Country: None (occurrence: None)
  Receive Date: 20100322
  Receipt Date: 20100315
  Transmission Date: 20100710
  Serious: Yes (Hospitalization)
  Sender: FDA-Public Use
  Company Number: PHHO2010IN02600

PATIENT
  Sex: Male

DRUGS (6)
  1. NEORAL [Suspect]
     Indication: RENAL TRANSPLANT
     Dosage: 125 MG, QD
     Route: 048
     Dates: start: 20091219, end: 20100109
  2. NEORAL [Suspect]
     Dosage: 50 MG DAILY
     Route: 048
     Dates: start: 20100113, end: 20100211
  3. CELLCEPT [Suspect]
     Indication: RENAL TRANSPLANT
     Dosage: 500 MG
     Route: 048
     Dates: start: 20100106
  4. PREDNISOLONE [Suspect]
     Dosage: UNK
     Route: 048
     Dates: start: 20100106, end: 20100109
  5. METOPROLOL TARTRATE [Concomitant]
  6. RAMIPRIL [Concomitant]

REACTIONS (9)
  - BLOOD CREATININE INCREASED [None]
  - DIARRHOEA [None]
  - GRAFT DYSFUNCTION [None]
  - GRAFT LOSS [None]
  - HYPERTENSION [None]
  - OEDEMA PERIPHERAL [None]
  - PROTEINURIA [None]
  - SWELLING FACE [None]
  - TRANSPLANT REJECTION [None]
